FAERS Safety Report 14133037 (Version 3)
Quarter: 2017Q4

REPORT INFORMATION
  Report Type: Report from Study
  Country: IT (occurrence: IT)
  Receive Date: 20171026
  Receipt Date: 20171112
  Transmission Date: 20180321
  Serious: Yes (Hospitalization)
  Sender: FDA-Public Use
  Company Number: IT-TEVA-818824ACC

PATIENT
  Age: 54 Year
  Sex: Male

DRUGS (1)
  1. VALSARTAN. [Suspect]
     Active Substance: VALSARTAN
     Indication: HYPERTENSION
     Dosage: 160 MILLIGRAM DAILY;
     Route: 048

REACTIONS (3)
  - Presyncope [Unknown]
  - Feeling abnormal [Unknown]
  - Cold sweat [Unknown]

NARRATIVE: CASE EVENT DATE: 20171001
